FAERS Safety Report 13457542 (Version 2)
Quarter: 2017Q2

REPORT INFORMATION
  Report Type: Report from Study
  Country: US (occurrence: US)
  Receive Date: 20170419
  Receipt Date: 20170516
  Transmission Date: 20170830
  Serious: Yes (Other)
  Sender: FDA-Public Use
  Company Number: US-GILEAD-2017-0265942

PATIENT
  Age: 54 Year
  Sex: Male

DRUGS (1)
  1. SOFOSBUVIR W/VELPATASVIR [Suspect]
     Active Substance: SOFOSBUVIR\VELPATASVIR
     Indication: CHRONIC HEPATITIS C
     Dosage: 1 DF, UNK
     Route: 048

REACTIONS (10)
  - Gait disturbance [Unknown]
  - Vision blurred [Unknown]
  - Weight decreased [Unknown]
  - Drug interaction [Recovering/Resolving]
  - Ammonia increased [Recovering/Resolving]
  - Motor dysfunction [Unknown]
  - Contusion [Unknown]
  - Dizziness [Not Recovered/Not Resolved]
  - Drug dose omission [Not Recovered/Not Resolved]
  - Fall [Unknown]
